FAERS Safety Report 10190941 (Version 4)
Quarter: 2015Q3

REPORT INFORMATION
  Report Type: Report from Study
  Country: AU (occurrence: AU)
  Receive Date: 20140523
  Receipt Date: 20150925
  Transmission Date: 20151125
  Serious: Yes (Hospitalization)
  Sender: FDA-Public Use
  Company Number: AU-ROCHE-1407025

PATIENT
  Age: 79 Year
  Sex: Female

DRUGS (8)
  1. RANIBIZUMAB [Suspect]
     Active Substance: RANIBIZUMAB
     Indication: AGE-RELATED MACULAR DEGENERATION
     Dosage: 0.5 MG/0.5 ML?THE PATIENT RECEIVED HIS NEXT DOSE OF 0.5 MG/0.5 ML RANIBIZUMAB PRIOR TO EVENT ONSET O
     Route: 050
     Dates: start: 20081015
  2. CARTIA (AUSTRALIA) [Concomitant]
     Route: 065
     Dates: start: 2001
  3. THYROXINE [Concomitant]
     Active Substance: LEVOTHYROXINE
     Route: 065
     Dates: start: 1998
  4. ESOMEPRAZOLE MAGNESIUM. [Concomitant]
     Active Substance: ESOMEPRAZOLE MAGNESIUM
     Route: 065
     Dates: start: 2006
  5. ACEBUTOLOL HYDROCHLORIDE. [Concomitant]
     Active Substance: ACEBUTOLOL HYDROCHLORIDE
     Route: 065
     Dates: start: 2006
  6. OFLOXACIN. [Concomitant]
     Active Substance: OFLOXACIN
     Route: 065
     Dates: start: 1997
  7. RANIBIZUMAB [Suspect]
     Active Substance: RANIBIZUMAB
     Dosage: 0.5 MG/0.5 ML
     Route: 050
     Dates: start: 20150902
  8. VENTOLINE [Concomitant]
     Active Substance: ALBUTEROL
     Route: 065
     Dates: start: 2006

REACTIONS (4)
  - Ocular hyperaemia [Unknown]
  - Eye injury [Unknown]
  - Conjunctival haemorrhage [Unknown]
  - Asthma [Recovering/Resolving]

NARRATIVE: CASE EVENT DATE: 20120708
